FAERS Safety Report 18333682 (Version 4)
Quarter: 2022Q1

REPORT INFORMATION
  Report Type: Spontaneous
  Country: US (occurrence: None)
  Receive Date: 20201001
  Receipt Date: 20220304
  Transmission Date: 20220423
  Serious: Yes (Hospitalization, Other)
  Sender: FDA-Public Use
  Company Number: 2020SF25269

PATIENT
  Age: 20296 Day
  Sex: Female
  Weight: 105.2 kg

DRUGS (91)
  1. FARXIGA [Suspect]
     Active Substance: DAPAGLIFLOZIN PROPANEDIOL
     Indication: Type 2 diabetes mellitus
     Route: 048
     Dates: start: 20160716, end: 201704
  2. FARXIGA [Suspect]
     Active Substance: DAPAGLIFLOZIN PROPANEDIOL
     Indication: Weight decreased
     Route: 048
     Dates: start: 20160716, end: 201704
  3. FARXIGA [Suspect]
     Active Substance: DAPAGLIFLOZIN PROPANEDIOL
     Indication: Hypotension
     Route: 048
     Dates: start: 20160716, end: 201704
  4. VANCOMYCIN [Concomitant]
     Active Substance: VANCOMYCIN
  5. UNSPECIFIED INGREDIENT [Concomitant]
     Active Substance: UNSPECIFIED INGREDIENT
  6. LEVEMIR [Concomitant]
     Active Substance: INSULIN DETEMIR
  7. LOSARTAN POTASSIUM [Concomitant]
     Active Substance: LOSARTAN POTASSIUM
  8. CLOTRIMAZOLE [Concomitant]
     Active Substance: CLOTRIMAZOLE
  9. BUPROPION HYDROCHLORIDE [Concomitant]
     Active Substance: BUPROPION HYDROCHLORIDE
  10. AMOXICILLIN\CLAVULANATE POTASSIUM [Concomitant]
     Active Substance: AMOXICILLIN\CLAVULANATE POTASSIUM
  11. VALACYCLOVIR [Concomitant]
     Active Substance: VALACYCLOVIR HYDROCHLORIDE
  12. HUMALOG [Concomitant]
     Active Substance: INSULIN LISPRO
  13. DOXYCYCLINE HYCLATE [Concomitant]
     Active Substance: DOXYCYCLINE HYCLATE
  14. METFORMIN [Concomitant]
     Active Substance: METFORMIN HYDROCHLORIDE
  15. NORCO [Concomitant]
     Active Substance: ACETAMINOPHEN\HYDROCODONE BITARTRATE
  16. LISINOPRIL [Concomitant]
     Active Substance: LISINOPRIL
  17. UNSPECIFIED INGREDIENT [Concomitant]
     Active Substance: UNSPECIFIED INGREDIENT
  18. DIAZEPAM [Concomitant]
     Active Substance: DIAZEPAM
  19. OXYCODONE [Concomitant]
     Active Substance: OXYCODONE
  20. LEVOTHYROXINE [Concomitant]
     Active Substance: LEVOTHYROXINE
  21. BYDUREON [Concomitant]
     Active Substance: EXENATIDE
  22. AMLODIPINE BESYLATE [Concomitant]
     Active Substance: AMLODIPINE BESYLATE
  23. CYCLOBENZAPRINE [Concomitant]
     Active Substance: CYCLOBENZAPRINE
  24. METOPROLOL TARTRATE [Concomitant]
     Active Substance: METOPROLOL TARTRATE
  25. HYDROCHLOROTHIAZIDE [Concomitant]
     Active Substance: HYDROCHLOROTHIAZIDE
  26. METOCLOPRAMIDE [Concomitant]
     Active Substance: METOCLOPRAMIDE
  27. SULFAMETHOXAZOLE [Concomitant]
     Active Substance: SULFAMETHOXAZOLE
  28. OLODATEROL HYDROCHLORIDE [Concomitant]
     Active Substance: OLODATEROL HYDROCHLORIDE
  29. ERTAPENEM [Concomitant]
     Active Substance: ERTAPENEM
  30. FLUTICASONE [Concomitant]
     Active Substance: FLUTICASONE
  31. PENICILLIN [Concomitant]
     Active Substance: PENICILLIN
  32. LYRICA [Concomitant]
     Active Substance: PREGABALIN
  33. DEXTROSE [Concomitant]
     Active Substance: DEXTROSE
  34. MAGNESIUM [Concomitant]
     Active Substance: MAGNESIUM
  35. TRAMADOL [Concomitant]
     Active Substance: TRAMADOL
  36. FENTANYL [Concomitant]
     Active Substance: FENTANYL
  37. LOVENOX [Concomitant]
     Active Substance: ENOXAPARIN SODIUM
  38. GLUCAGON [Concomitant]
     Active Substance: GLUCAGON
  39. MAGNESIUM SULFATE [Concomitant]
     Active Substance: MAGNESIUM SULFATE
  40. AMIKACIN [Concomitant]
     Active Substance: AMIKACIN
  41. AZTREONAM [Concomitant]
     Active Substance: AZTREONAM
  42. SULBACTAM [Concomitant]
     Active Substance: SULBACTAM
  43. CEFEPIME [Concomitant]
     Active Substance: CEFEPIME HYDROCHLORIDE
  44. CIPROFLOXACIN [Concomitant]
     Active Substance: CIPROFLOXACIN
  45. CEFTRIAXONE [Concomitant]
     Active Substance: CEFTRIAXONE
  46. SENNA [Concomitant]
     Active Substance: SENNA LEAF\SENNOSIDES\SENNOSIDES A AND B
  47. FLUVIRIN NOS [Concomitant]
     Active Substance: INFLUENZA VIRUS VACCINE
  48. CLOBETASOL [Concomitant]
     Active Substance: CLOBETASOL
  49. MYLANTA [Concomitant]
     Active Substance: ALUMINUM HYDROXIDE\DIMETHICONE\MAGNESIUM HYDROXIDE
  50. THERAMILL [Concomitant]
  51. ACETAMINOPHEN\HYDROCODONE BITARTRATE [Concomitant]
     Active Substance: ACETAMINOPHEN\HYDROCODONE BITARTRATE
  52. MILK OF MAGNESIA [Concomitant]
     Active Substance: MAGNESIUM HYDROXIDE
  53. DILAUDID [Concomitant]
     Active Substance: HYDROMORPHONE HYDROCHLORIDE
  54. DIFLUCAN [Concomitant]
     Active Substance: FLUCONAZOLE
  55. MEROPENEM [Concomitant]
     Active Substance: MEROPENEM
  56. MICONAZOLE [Concomitant]
     Active Substance: MICONAZOLE
  57. NAPROXEN [Concomitant]
     Active Substance: NAPROXEN
  58. CLINDAMYCIN [Concomitant]
     Active Substance: CLINDAMYCIN
     Dates: start: 20200114
  59. GAVILYTE [Concomitant]
     Dates: start: 20200207
  60. BASAGLAR [Concomitant]
     Active Substance: INSULIN GLARGINE
     Dates: start: 20200207
  61. CEFDINIR [Concomitant]
     Active Substance: CEFDINIR
     Dates: start: 20200207
  62. CEPHALEXIN [Concomitant]
     Active Substance: CEPHALEXIN
     Dates: start: 20181226
  63. VICTOZA [Concomitant]
     Active Substance: LIRAGLUTIDE
     Dates: start: 20121210
  64. ZOLPIDEM [Concomitant]
     Active Substance: ZOLPIDEM TARTRATE
     Dates: start: 20121105
  65. SERTRALINE [Concomitant]
     Active Substance: SERTRALINE HYDROCHLORIDE
     Dates: start: 20121105
  66. PRAVASTATIN [Concomitant]
     Active Substance: PRAVASTATIN
     Dates: start: 20121102
  67. PREDNISONE [Concomitant]
     Active Substance: PREDNISONE
     Dates: start: 20121012
  68. ETODOLAC [Concomitant]
     Active Substance: ETODOLAC
     Dates: start: 20120711
  69. CAMILA [Concomitant]
     Active Substance: NORETHINDRONE
     Dates: start: 20120213
  70. DIOVAN [Concomitant]
     Active Substance: VALSARTAN
     Dates: start: 20081204
  71. GLIMEPIRIDE [Concomitant]
     Active Substance: GLIMEPIRIDE
     Dates: start: 20080922
  72. CLARITHROMYCIN [Concomitant]
     Active Substance: CLARITHROMYCIN
     Dates: start: 20080922
  73. PROMETHAZINE [Concomitant]
     Active Substance: PROMETHAZINE HYDROCHLORIDE
     Dates: start: 20080126
  74. LIPITOR [Concomitant]
     Active Substance: ATORVASTATIN CALCIUM
  75. PROTONIX [Concomitant]
     Active Substance: PANTOPRAZOLE SODIUM
  76. ZOFRAN [Concomitant]
     Active Substance: ONDANSETRON HYDROCHLORIDE
  77. KLOR-CON [Concomitant]
     Active Substance: POTASSIUM CHLORIDE
  78. ALPRAZOLAM [Concomitant]
     Active Substance: ALPRAZOLAM
  79. LEXAPRO [Concomitant]
     Active Substance: ESCITALOPRAM OXALATE
  80. FLULAVAL QUAD [Concomitant]
  81. AUGMENTIN [Concomitant]
     Active Substance: AMOXICILLIN\CLAVULANATE POTASSIUM
  82. MAGNESIUM SULFATE [Concomitant]
     Active Substance: MAGNESIUM SULFATE
  83. PNEUMOVAX 23 [Concomitant]
     Active Substance: PNEUMOCOCCAL VACCINE, POLYVALENT 23
  84. AMPICILLIN SODIUM\SULBACTAM SODIUM [Concomitant]
     Active Substance: AMPICILLIN SODIUM\SULBACTAM SODIUM
  85. METFORMIN HYDROCHLORIDE [Concomitant]
     Active Substance: METFORMIN HYDROCHLORIDE
  86. LANTUS SOLOSTAR [Concomitant]
     Active Substance: INSULIN GLARGINE
     Dates: start: 20121105
  87. FAMOTIDINE [Concomitant]
     Active Substance: FAMOTIDINE
     Dates: start: 20121105
  88. ESCITALOPRAM [Concomitant]
     Active Substance: ESCITALOPRAM OXALATE
     Dates: start: 20121105
  89. ZERBAXA [Concomitant]
     Active Substance: CEFTOLOZANE SULFATE\TAZOBACTAM SODIUM
     Dates: start: 20121105
  90. CEFDINIR [Concomitant]
     Active Substance: CEFDINIR
     Dates: start: 20121105
  91. ONDANSETRON HYDROCHLORIDE [Concomitant]
     Active Substance: ONDANSETRON HYDROCHLORIDE

REACTIONS (15)
  - Fournier^s gangrene [Unknown]
  - Staphylococcal infection [Unknown]
  - Abscess limb [Unknown]
  - Cellulitis gangrenous [Unknown]
  - Wound [Unknown]
  - Abdominal abscess [Unknown]
  - Cellulitis [Unknown]
  - Abscess [Unknown]
  - Skin necrosis [Unknown]
  - Fat necrosis [Unknown]
  - Sepsis [Unknown]
  - Systemic inflammatory response syndrome [Unknown]
  - Nerve injury [Unknown]
  - Pain [Unknown]
  - Scar [Unknown]

NARRATIVE: CASE EVENT DATE: 20170409
